FAERS Safety Report 9664378 (Version 2)
Quarter: 2013Q4

REPORT INFORMATION
  Report Type: Spontaneous
  Country: ZA (occurrence: ZA)
  Receive Date: 20131101
  Receipt Date: 20131101
  Transmission Date: 20140711
  Serious: Yes (Life-Threatening, Other)
  Sender: FDA-Public Use
  Company Number: ZA-PFIZER INC-2013271297

PATIENT
  Age: 8 Month
  Sex: Female

DRUGS (2)
  1. ORELOX [Suspect]
     Indication: OTITIS MEDIA
     Dosage: 5 ML, 2X/DAY, 40MG
     Route: 048
     Dates: start: 20130820, end: 20130820
  2. ALLERGEX [Concomitant]
     Dosage: UNK

REACTIONS (8)
  - Angioedema [Recovered/Resolved]
  - Eye swelling [Recovered/Resolved]
  - Swelling face [Recovered/Resolved]
  - Lip swelling [Recovered/Resolved]
  - Rash [Recovered/Resolved]
  - Erythema [Recovered/Resolved]
  - Dyspnoea [Recovered/Resolved]
  - Screaming [Recovered/Resolved]
